FAERS Safety Report 13058571 (Version 1)
Quarter: 2016Q4

REPORT INFORMATION
  Report Type: Spontaneous
  Country: US (occurrence: US)
  Receive Date: 20161223
  Receipt Date: 20161223
  Transmission Date: 20170207
  Serious: No
  Sender: FDA-Public Use
  Company Number: US-BAUSCH-BL-2016-000802

PATIENT
  Sex: Female

DRUGS (4)
  1. XENAZINE [Suspect]
     Active Substance: TETRABENAZINE
     Route: 048
  2. TETRABENAZINE. [Suspect]
     Active Substance: TETRABENAZINE
     Indication: PRODUCT USED FOR UNKNOWN INDICATION
     Route: 065
     Dates: start: 2015
  3. XENAZINE [Suspect]
     Active Substance: TETRABENAZINE
     Indication: HUNTINGTON^S DISEASE
     Route: 048
     Dates: start: 201405
  4. XENAZINE [Suspect]
     Active Substance: TETRABENAZINE
     Dosage: 1 TABLET  BY MOUTH IN THE MORNING AND 2 TABLETS BY MOUTH IN THE EVENING

REACTIONS (3)
  - Drug dose omission [Unknown]
  - Product substitution issue [Unknown]
  - Huntington^s disease [Unknown]
